FAERS Safety Report 25744042 (Version 1)
Quarter: 2025Q3

REPORT INFORMATION
  Report Type: Spontaneous
  Country: US (occurrence: US)
  Receive Date: 20250831
  Receipt Date: 20250831
  Transmission Date: 20251021
  Serious: No
  Sender: JOHNSON AND JOHNSON
  Company Number: US-JNJFOC-20250826058

PATIENT
  Sex: Female

DRUGS (1)
  1. BALVERSA [Suspect]
     Active Substance: ERDAFITINIB
     Indication: Breast cancer metastatic

REACTIONS (3)
  - Neck mass [Unknown]
  - Hypoaesthesia [Unknown]
  - Off label use [Unknown]
